FAERS Safety Report 5417512-4 (Version None)
Quarter: 2007Q3

REPORT INFORMATION
  Report Type: 
  Country: None (occurrence: None)
  Receive Date: 20070816
  Receipt Date: 20070808
  Transmission Date: 20080115
  Serious: Yes (Hospitalization)
  Sender: FDA-Public Use
  Company Number: AU-MERCK-0708AUS00178

PATIENT
  Age: 43 Year
  Sex: Female

DRUGS (5)
  1. EMEND [Suspect]
     Indication: PROPHYLAXIS OF NAUSEA AND VOMITING
     Route: 048
  2. DOXORUBICIN [Suspect]
     Indication: BREAST CANCER
     Route: 042
  3. DOXORUBICIN [Suspect]
     Route: 042
  4. CYCLOPHOSPHAMIDE [Suspect]
     Indication: BREAST CANCER
     Route: 042
  5. CYCLOPHOSPHAMIDE [Suspect]
     Route: 042

REACTIONS (1)
  - PALMAR-PLANTAR ERYTHRODYSAESTHESIA SYNDROME [None]
